FAERS Safety Report 5742893-1 (Version None)
Quarter: 2008Q2

REPORT INFORMATION
  Report Type: 
  Country: None (occurrence: None)
  Receive Date: 20080515
  Receipt Date: 20080515
  Transmission Date: 20081010
  Serious: Yes (Other)
  Sender: FDA-Public Use
  Company Number: None

PATIENT
  Age: 20 Year
  Sex: Male
  Weight: 63.5036 kg

DRUGS (1)
  1. CREST PRO-HEALTH (PROCTER + GAMBLE) [Suspect]
     Indication: DENTAL DISORDER PROPHYLAXIS
     Dosage: 20ML TWICE DAILY
     Dates: start: 20071201, end: 20080505

REACTIONS (1)
  - TOOTH DISCOLOURATION [None]
